FAERS Safety Report 18435447 (Version 1)
Quarter: 2020Q4

REPORT INFORMATION
  Report Type: Spontaneous
  Country: PK (occurrence: PK)
  Receive Date: 20201028
  Receipt Date: 20201028
  Transmission Date: 20210114
  Serious: Yes (Death, Life-Threatening, Hospitalization)
  Sender: FDA-Public Use
  Company Number: PK-STRIDES ARCOLAB LIMITED-2020SP012847

PATIENT
  Age: 9 Month
  Sex: Female

DRUGS (1)
  1. POTASSIUM CHLORIDE. [Suspect]
     Active Substance: POTASSIUM CHLORIDE
     Indication: PRODUCT USED FOR UNKNOWN INDICATION
     Dosage: UNK, 15% KCL INJECTION
     Route: 042

REACTIONS (7)
  - Overdose [Fatal]
  - Muscular weakness [Not Recovered/Not Resolved]
  - Brain injury [Not Recovered/Not Resolved]
  - Paralysis [Not Recovered/Not Resolved]
  - Asthenia [Not Recovered/Not Resolved]
  - Cyanosis [Not Recovered/Not Resolved]
  - Lung hypoinflation [Not Recovered/Not Resolved]
